FAERS Safety Report 23661866 (Version 3)
Quarter: 2024Q2

REPORT INFORMATION
  Report Type: Spontaneous
  Country: JP (occurrence: None)
  Receive Date: 20240322
  Receipt Date: 20240619
  Transmission Date: 20240715
  Serious: Yes (Death)
  Sender: FDA-Public Use
  Company Number: 2024A066075

PATIENT
  Age: 83 Year
  Sex: Male
  Weight: 51 kg

DRUGS (14)
  1. LOKELMA [Suspect]
     Active Substance: SODIUM ZIRCONIUM CYCLOSILICATE
     Indication: Hyperkalaemia
     Dosage: AFTER EACH MEALS
     Route: 048
     Dates: start: 20240312, end: 20240313
  2. AMLODIPINE [Concomitant]
     Active Substance: AMLODIPINE BESYLATE
     Indication: Hypertension
     Route: 048
     Dates: end: 20240315
  3. FEBUXOSTAT [Concomitant]
     Active Substance: FEBUXOSTAT
     Indication: Hyperuricaemia
     Route: 048
     Dates: end: 20240315
  4. ROSUVASTATIN [Concomitant]
     Active Substance: ROSUVASTATIN
     Indication: Dyslipidaemia
     Route: 048
     Dates: end: 20240315
  5. IRBESARTAN [Concomitant]
     Active Substance: IRBESARTAN
     Indication: Hyperkalaemia
     Route: 048
     Dates: end: 20240315
  6. MIRABEGRON [Concomitant]
     Active Substance: MIRABEGRON
     Indication: Bladder disorder
     Route: 048
     Dates: end: 20240314
  7. SILODOSIN OD [Concomitant]
     Indication: Benign prostatic hyperplasia
     Route: 048
     Dates: end: 20240315
  8. TORSEMIDE [Concomitant]
     Active Substance: TORSEMIDE
     Indication: Oedema
     Route: 048
     Dates: end: 20240315
  9. FLUNITRAZEPAM [Concomitant]
     Active Substance: FLUNITRAZEPAM
     Indication: Insomnia
     Route: 048
     Dates: end: 20240314
  10. ETHYL LOFLAZEPATE [Concomitant]
     Active Substance: ETHYL LOFLAZEPATE
     Indication: Insomnia
     Route: 048
     Dates: end: 20240314
  11. BROTIZOLAM [Concomitant]
     Active Substance: BROTIZOLAM
     Indication: Insomnia
     Route: 048
     Dates: end: 20240314
  12. MAGNESIUM OXIDE [Concomitant]
     Active Substance: MAGNESIUM OXIDE
     Indication: Constipation
     Route: 048
     Dates: end: 20240314
  13. LEVOMEPROMAZINE [Concomitant]
     Active Substance: LEVOMEPROMAZINE
     Indication: Anxiety
     Route: 048
     Dates: end: 20240314
  14. PHENOBARBITAL [Concomitant]
     Active Substance: PHENOBARBITAL
     Indication: Anxiety
     Route: 048
     Dates: end: 20240314

REACTIONS (1)
  - Hypercapnia [Fatal]

NARRATIVE: CASE EVENT DATE: 20240315
